FAERS Safety Report 23534787 (Version 2)
Quarter: 2024Q1

REPORT INFORMATION
  Report Type: Report from Study
  Country: CA (occurrence: CA)
  Receive Date: 20240217
  Receipt Date: 20240305
  Transmission Date: 20240410
  Serious: Yes (Other)
  Sender: FDA-Public Use
  Company Number: CA-ABBVIE-5640795

PATIENT
  Age: 51 Year
  Sex: Female

DRUGS (1)
  1. SKYRIZI [Suspect]
     Active Substance: RISANKIZUMAB-RZAA
     Indication: Crohn^s disease
     Dosage: FREQUENCY TEXT: WEEK 0
     Route: 042
     Dates: start: 20240212, end: 20240212

REACTIONS (11)
  - Anaphylactic shock [Unknown]
  - Malaise [Unknown]
  - Headache [Unknown]
  - Infusion site irritation [Unknown]
  - Agitation [Recovering/Resolving]
  - Sensation of foreign body [Unknown]
  - Oropharyngeal pain [Unknown]
  - Throat tightness [Recovered/Resolved]
  - Infusion site erythema [Unknown]
  - Infusion site plaque [Unknown]
  - Infusion site vesicles [Unknown]

NARRATIVE: CASE EVENT DATE: 20240212
